FAERS Safety Report 5384831-X (Version None)
Quarter: 2007Q3

REPORT INFORMATION
  Report Type: 
  Country: None (occurrence: None)
  Receive Date: 20070706
  Receipt Date: 20070507
  Transmission Date: 20080115
  Serious: No
  Sender: FDA-Public Use
  Company Number: PHEH2007US07700

PATIENT
  Sex: Male

DRUGS (1)
  1. TEKTURNA [Suspect]
     Dosage: 150 MG, QD, ORAL

REACTIONS (2)
  - BLOOD PRESSURE INCREASED [None]
  - NERVOUSNESS [None]
